FAERS Safety Report 18089423 (Version 7)
Quarter: 2020Q4

REPORT INFORMATION
  Report Type: Report from Study
  Country: US (occurrence: US)
  Receive Date: 20200729
  Receipt Date: 20201123
  Transmission Date: 20210113
  Serious: Yes (Hospitalization)
  Sender: FDA-Public Use
  Company Number: NVSC2020US211945

PATIENT
  Age: 71 Year
  Sex: Female

DRUGS (1)
  1. ENTRESTO [Suspect]
     Active Substance: SACUBITRIL\VALSARTAN
     Indication: CARDIAC FAILURE
     Dosage: 0.5 DF, BID (12.13 MG)
     Route: 048
     Dates: start: 20200705, end: 20201106

REACTIONS (12)
  - Dyspnoea [Unknown]
  - Atrioventricular block [Unknown]
  - Fatigue [Unknown]
  - Wrong technique in product usage process [Unknown]
  - Dizziness postural [Unknown]
  - Chest pain [Unknown]
  - Cough [Unknown]
  - Underdose [Unknown]
  - Product prescribing error [Unknown]
  - Product dose omission issue [Unknown]
  - Memory impairment [Unknown]
  - Hypotension [Unknown]

NARRATIVE: CASE EVENT DATE: 20200831
